FAERS Safety Report 25518898 (Version 1)
Quarter: 2025Q3

REPORT INFORMATION
  Report Type: Report from Study
  Country: US (occurrence: US)
  Receive Date: 20250704
  Receipt Date: 20250704
  Transmission Date: 20251020
  Serious: Yes (Other)
  Sender: UCB
  Company Number: US-UCBSA-2023027789

PATIENT
  Age: 25 Year
  Sex: Male
  Weight: 66 kg

DRUGS (10)
  1. FINTEPLA [Suspect]
     Active Substance: FENFLURAMINE
     Indication: Focal dyscognitive seizures
     Dosage: 6 MILLILITER, 2X/DAY (BID)
     Dates: start: 20230531
  2. FINTEPLA [Suspect]
     Active Substance: FENFLURAMINE
     Indication: Off label use
     Dosage: 4 MILLILITER, 3X/DAY (TID)
  3. FINTEPLA [Suspect]
     Active Substance: FENFLURAMINE
     Indication: Epilepsy
     Dosage: 5 ML IN MORNING, 4 ML IN AFTERNOON, 3 ML IN EVENING
  4. FINTEPLA [Suspect]
     Active Substance: FENFLURAMINE
     Indication: Seizure
     Dosage: 13 MILLILITER, ONCE DAILY (QD)
     Dates: start: 20230716
  5. FINTEPLA [Suspect]
     Active Substance: FENFLURAMINE
     Dosage: 6 ML IN MORNING, 5 ML IN AFTERNOON, 4 ML IN EVENING
     Dates: start: 20240125
  6. FINTEPLA [Suspect]
     Active Substance: FENFLURAMINE
     Dosage: 6 ML IN MORNING, 5 ML IN AFTERNOON, 4 ML IN EVENING
  7. FINTEPLA [Suspect]
     Active Substance: FENFLURAMINE
  8. FINTEPLA [Suspect]
     Active Substance: FENFLURAMINE
     Dosage: 5 ML QAM, 4 ML EVERY AFTERNOON, 4 ML QPM
  9. FINTEPLA [Suspect]
     Active Substance: FENFLURAMINE
     Dosage: 6 ML IN MORNING, 5 ML IN AFTERNOON, 4 ML IN EVENING
     Dates: start: 2024
  10. DIACOMIT [Suspect]
     Active Substance: STIRIPENTOL
     Indication: Product used for unknown indication

REACTIONS (15)
  - Seizure [Not Recovered/Not Resolved]
  - Pulmonary valve incompetence [Unknown]
  - Right ventricular dilatation [Unknown]
  - Right atrial dilatation [Unknown]
  - Tricuspid valve incompetence [Unknown]
  - COVID-19 [Not Recovered/Not Resolved]
  - Headache [Not Recovered/Not Resolved]
  - Somnolence [Not Recovered/Not Resolved]
  - Agitation [Not Recovered/Not Resolved]
  - Screaming [Not Recovered/Not Resolved]
  - Insomnia [Not Recovered/Not Resolved]
  - Aggression [Not Recovered/Not Resolved]
  - Off label use [Unknown]
  - Overdose [Unknown]
  - Drug ineffective [Unknown]

NARRATIVE: CASE EVENT DATE: 20230531
